FAERS Safety Report 24041369 (Version 1)
Quarter: 2024Q3

REPORT INFORMATION
  Report Type: Spontaneous
  Country: US (occurrence: None)
  Receive Date: 20240702
  Receipt Date: 20240702
  Transmission Date: 20241016
  Serious: Yes (Hospitalization)
  Sender: Public
  Company Number: None

PATIENT
  Age: 35 Year
  Sex: Male

DRUGS (1)
  1. METHOTREXATE [Suspect]
     Active Substance: METHOTREXATE

REACTIONS (3)
  - Therapy cessation [None]
  - Adverse event [None]
  - Hospitalisation [None]
